FAERS Safety Report 8465848-5 (Version None)
Quarter: 2012Q2

REPORT INFORMATION
  Report Type: 
  Country: None (occurrence: None)
  Receive Date: 20120626
  Receipt Date: 20120618
  Transmission Date: 20120825
  Serious: Yes (Other)
  Sender: FDA-Public Use
  Company Number: FR-B.I. PHARMACEUTICALS,INC./RIDGEFIELD-2012-FF-00769FF

PATIENT
  Sex: Female
  Weight: 66 kg

DRUGS (1)
  1. PRADAXA [Suspect]
     Dosage: 110 MG
     Route: 048
     Dates: start: 20101116, end: 20101121

REACTIONS (1)
  - DEEP VEIN THROMBOSIS [None]
